FAERS Safety Report 24693758 (Version 3)
Quarter: 2025Q3

REPORT INFORMATION
  Report Type: Spontaneous
  Country: US (occurrence: US)
  Receive Date: 20241204
  Receipt Date: 20250729
  Transmission Date: 20251020
  Serious: No
  Sender: GLAUKOS
  Company Number: US-GLK-002400

PATIENT
  Age: 33 Year

DRUGS (5)
  1. PHOTREXA [Suspect]
     Active Substance: RIBOFLAVIN 5^-PHOSPHATE SODIUM
     Indication: Keratoconus
     Route: 047
     Dates: start: 20241015, end: 20241015
  2. PHOTREXA VISCOUS [Suspect]
     Active Substance: RIBOFLAVIN 5^-PHOSPHATE SODIUM
     Indication: Keratoconus
     Route: 047
     Dates: start: 20241015, end: 20241015
  3. KETOROLAC [Concomitant]
     Active Substance: KETOROLAC TROMETHAMINE
     Indication: Eye pain
     Dosage: POST-OPERATIVE MEDICATION, BID PRN X 2 DAYS
  4. PRED FORTE [Concomitant]
     Active Substance: PREDNISOLONE ACETATE
     Dosage: POST-OPERATIVE MEDICATIONS, QID
  5. OFLOXACIN [Concomitant]
     Active Substance: OFLOXACIN
     Dosage: POST-OPERATIVE MEDICATIONS, QID

REACTIONS (6)
  - Impaired healing [Unknown]
  - Corneal oedema [Unknown]
  - Eye swelling [Unknown]
  - Corneal epithelium defect [Unknown]
  - Eye pain [Unknown]
  - Corneal scar [Unknown]

NARRATIVE: CASE EVENT DATE: 20241018
